FAERS Safety Report 10901592 (Version 1)
Quarter: 2015Q1

REPORT INFORMATION
  Report Type: Spontaneous
  Country: US (occurrence: US)
  Receive Date: 20150310
  Receipt Date: 20150310
  Transmission Date: 20150721
  Serious: Yes (Other)
  Sender: FDA-Public Use
  Company Number: US-AMGEN-00060425

PATIENT
  Age: 42 Year
  Sex: Male
  Weight: 113 kg

DRUGS (9)
  1. PIROXICAM. [Concomitant]
     Active Substance: PIROXICAM
     Indication: PSORIATIC ARTHROPATHY
     Dosage: UNK UNK, UNK
     Dates: start: 1997
  2. METHOTREXATE [Concomitant]
     Active Substance: METHOTREXATE
     Indication: PSORIASIS
     Dosage: UNK
     Dates: start: 1995
  3. METHOTREXATE [Concomitant]
     Active Substance: METHOTREXATE
     Indication: PSORIATIC ARTHROPATHY
  4. TREXALL [Concomitant]
     Active Substance: METHOTREXATE SODIUM
     Dosage: UNK UNK, UNK
     Route: 065
     Dates: start: 1995
  5. PREDNISONE. [Concomitant]
     Active Substance: PREDNISONE
     Dosage: UNK
  6. METHOTREXATE [Concomitant]
     Active Substance: METHOTREXATE
     Indication: MULTIPLE SCLEROSIS
  7. ENBREL [Suspect]
     Active Substance: ETANERCEPT
     Indication: PSORIATIC ARTHROPATHY
     Dosage: 25 MG, 2 TIMES/WK
     Route: 058
     Dates: start: 19990326
  8. PROPOXYPHENE NAPSYLATE AND ACETAMINOPHEN [Concomitant]
     Active Substance: ACETAMINOPHEN\PROPOXYPHENE NAPSYLATE
     Dosage: UNK
     Dates: start: 19990326
  9. CLONAZEPAM. [Concomitant]
     Active Substance: CLONAZEPAM
     Dosage: UNK UNK, UNK
     Dates: start: 19991001, end: 19991120

REACTIONS (5)
  - Hyperventilation [Unknown]
  - Multiple sclerosis [Not Recovered/Not Resolved]
  - Psoriatic arthropathy [Unknown]
  - Sinusitis [Unknown]
  - Anxiety [Unknown]

NARRATIVE: CASE EVENT DATE: 19990718
